FAERS Safety Report 4828562-0 (Version None)
Quarter: 2005Q4

REPORT INFORMATION
  Report Type: 
  Country: None (occurrence: None)
  Receive Date: 20051110
  Receipt Date: 20051101
  Transmission Date: 20060501
  Serious: Yes (Other)
  Sender: FDA-Public Use
  Company Number: 2005-11-0284

PATIENT
  Age: 37 Year
  Sex: Female

DRUGS (1)
  1. DESALEX (DESLORATADINE) TABLETS [Suspect]
     Indication: HYPERSENSITIVITY
     Dosage: 5 MG QD ORAL
     Route: 048
     Dates: start: 20051031

REACTIONS (2)
  - NASAL CONGESTION [None]
  - RESPIRATORY ARREST [None]
